FAERS Safety Report 14837856 (Version 3)
Quarter: 2018Q3

REPORT INFORMATION
  Report Type: Spontaneous
  Country: DE (occurrence: DE)
  Receive Date: 20180502
  Receipt Date: 20180824
  Transmission Date: 20181010
  Serious: Yes (Hospitalization)
  Sender: FDA-Public Use
  Company Number: DE-009507513-1804DEU009833

PATIENT
  Age: 80 Year
  Sex: Male

DRUGS (14)
  1. PANTOPRAZOLE [Concomitant]
     Active Substance: PANTOPRAZOLE
     Indication: PRODUCT USED FOR UNKNOWN INDICATION
     Dosage: 40 MG, QD
     Route: 065
  2. RASAGILINE. [Suspect]
     Active Substance: RASAGILINE
     Indication: PRODUCT USED FOR UNKNOWN INDICATION
     Dosage: 1 MG, QD
     Route: 065
  3. MADOPAR [Suspect]
     Active Substance: BENSERAZIDE HYDROCHLORIDE\LEVODOPA
     Indication: PRODUCT USED FOR UNKNOWN INDICATION
     Dosage: 100/25 MG, 1?0?0?0
     Route: 065
  4. NACOM 250 MG/25 MG TABLETTEN [Suspect]
     Active Substance: CARBIDOPA\LEVODOPA
     Indication: PRODUCT USED FOR UNKNOWN INDICATION
     Dosage: 200/50 MG, 0?0?0?1
     Route: 065
  5. DIMENHYDRINATE. [Concomitant]
     Active Substance: DIMENHYDRINATE
     Indication: PRODUCT USED FOR UNKNOWN INDICATION
     Dosage: 40 MG, QD
     Route: 065
  6. ROTIGOTINE [Suspect]
     Active Substance: ROTIGOTINE
     Indication: PRODUCT USED FOR UNKNOWN INDICATION
     Dosage: 5 MG, QD
     Route: 062
  7. MOLSIDOMINE [Suspect]
     Active Substance: MOLSIDOMINE
     Indication: PRODUCT USED FOR UNKNOWN INDICATION
     Dosage: 8 MG, QD
     Route: 065
  8. ASPIRIN. [Concomitant]
     Active Substance: ASPIRIN
     Indication: PRODUCT USED FOR UNKNOWN INDICATION
     Dosage: 100 MG, QD
     Route: 065
  9. CHOLECALCIFEROL [Concomitant]
     Active Substance: CHOLECALCIFEROL
     Indication: PRODUCT USED FOR UNKNOWN INDICATION
     Dosage: UNK UNK, QD
     Route: 065
  10. STALEVO [Suspect]
     Active Substance: CARBIDOPA\ENTACAPONE\LEVODOPA
     Indication: PRODUCT USED FOR UNKNOWN INDICATION
     Dosage: 100/25/200 MG, 1?1?1?1
     Route: 065
  11. ROTIGOTINE [Suspect]
     Active Substance: ROTIGOTINE
     Dosage: UNK
     Route: 062
  12. SIMVASTATIN. [Concomitant]
     Active Substance: SIMVASTATIN
     Indication: PRODUCT USED FOR UNKNOWN INDICATION
     Dosage: 40 MG, QD
     Route: 065
  13. REPAGLINIDE. [Concomitant]
     Active Substance: REPAGLINIDE
     Indication: PRODUCT USED FOR UNKNOWN INDICATION
     Dosage: 0.5 MG, TID
     Route: 065
  14. CINNARIZINE [Concomitant]
     Active Substance: CINNARIZINE
     Indication: PRODUCT USED FOR UNKNOWN INDICATION
     Dosage: 10 MG, UNK
     Route: 065

REACTIONS (2)
  - Dysarthria [Unknown]
  - Loss of consciousness [Unknown]
